FAERS Safety Report 9908932 (Version 1)
Quarter: 2014Q1

REPORT INFORMATION
  Report Type: Spontaneous
  Country: US (occurrence: None)
  Receive Date: 20140212
  Receipt Date: 20140212
  Transmission Date: 20141002
  Serious: Yes (Other)
  Sender: FDA-Public Use
  Company Number: None

PATIENT
  Age: 7 Year
  Sex: Male

DRUGS (1)
  1. DIVALPROEX SODIUM [Suspect]
     Route: 048
     Dates: start: 20090910, end: 20091010

REACTIONS (3)
  - Reaction to drug excipients [None]
  - Agitation [None]
  - Abnormal behaviour [None]
